FAERS Safety Report 8854191 (Version 2)
Quarter: 2012Q4

REPORT INFORMATION
  Report Type: 
  Country: GB (occurrence: GB)
  Receive Date: 20121022
  Receipt Date: 20121120
  Transmission Date: 20130627
  Serious: Yes (Death)
  Sender: FDA-Public Use
  Company Number: GB-B.I. PHARMACEUTICALS,INC./RIDGEFIELD-2012-UK-01526UK

PATIENT

DRUGS (1)
  1. DABIGATRAN [Suspect]

REACTIONS (1)
  - Death [Fatal]
